FAERS Safety Report 7333353-5 (Version None)
Quarter: 2011Q1

REPORT INFORMATION
  Report Type: 
  Country: None (occurrence: None)
  Receive Date: 20110304
  Receipt Date: 20110218
  Transmission Date: 20110831
  Serious: Yes (Death, Hospitalization, Other)
  Sender: FDA-Public Use
  Company Number: US-CELGENEUS-163-21880-10123403

PATIENT
  Sex: Male

DRUGS (10)
  1. REVLIMID [Suspect]
     Dosage: 10 MILLIGRAM
     Route: 048
     Dates: start: 20101028, end: 20101202
  2. RED BLOOD CELLS [Concomitant]
  3. PLATELETS [Concomitant]
     Route: 051
  4. DEXAMETHASONE [Concomitant]
     Dosage: 20 MILLIGRAM
     Route: 065
  5. RED BLOOD CELLS [Concomitant]
     Route: 051
  6. ASA [Concomitant]
     Indication: PROPHYLAXIS
     Dosage: LOW DOSE
     Route: 065
  7. LIPITOR [Concomitant]
     Dosage: LOW DOSE
     Route: 048
  8. ZOMETA [Concomitant]
     Route: 051
  9. BETA BLOCKER [Concomitant]
     Dosage: LOW DOSE
     Route: 065
  10. REVLIMID [Suspect]
     Indication: MULTIPLE MYELOMA
     Dosage: 25 MILLIGRAM
     Route: 048
     Dates: start: 20090401

REACTIONS (8)
  - PNEUMONIA [None]
  - ARRHYTHMIA [None]
  - CEREBROVASCULAR ACCIDENT [None]
  - DISEASE PROGRESSION [None]
  - DEATH [None]
  - MYOCARDIAL INFARCTION [None]
  - PANCYTOPENIA [None]
  - NEUTROPENIA [None]
